FAERS Safety Report 16679461 (Version 2)
Quarter: 2019Q3

REPORT INFORMATION
  Report Type: Spontaneous
  Country: US (occurrence: US)
  Receive Date: 20190807
  Receipt Date: 20190812
  Transmission Date: 20191004
  Serious: Yes (Death, Other)
  Sender: FDA-Public Use
  Company Number: US-PFIZER INC-2019171767

PATIENT
  Age: 64 Year
  Sex: Male

DRUGS (15)
  1. PREVACID [Suspect]
     Active Substance: LANSOPRAZOLE
     Dosage: 40 MG, DAILY
  2. PRILOSEC OTC [Suspect]
     Active Substance: OMEPRAZOLE MAGNESIUM
     Dosage: 20 MG, DAILY
  3. PREVACID IV [Suspect]
     Active Substance: LANSOPRAZOLE
     Dosage: UNK
     Route: 042
  4. PRILOSEC [Suspect]
     Active Substance: OMEPRAZOLE MAGNESIUM
     Dosage: 20 MG, DAILY
     Dates: start: 200307, end: 201801
  5. DEXILANT [Suspect]
     Active Substance: DEXLANSOPRAZOLE
     Indication: GASTROOESOPHAGEAL REFLUX DISEASE
     Dosage: 40 MG, DAILY
     Dates: start: 200902, end: 201712
  6. PREVACID 24 HR [Suspect]
     Active Substance: LANSOPRAZOLE
     Dosage: 15 MG, DAILY
  7. LANSOPRAZOLE. [Suspect]
     Active Substance: LANSOPRAZOLE
     Dosage: UNK
  8. PROTONIX [Suspect]
     Active Substance: PANTOPRAZOLE SODIUM
     Dosage: UNK
  9. NEXIUM I.V. [Suspect]
     Active Substance: ESOMEPRAZOLE SODIUM
     Dosage: UNK
     Route: 042
  10. NEXIUM 24HR [Suspect]
     Active Substance: ESOMEPRAZOLE MAGNESIUM
     Dosage: 20 MG, DAILY
  11. NEXIUM [Suspect]
     Active Substance: ESOMEPRAZOLE MAGNESIUM
     Indication: GASTROOESOPHAGEAL REFLUX DISEASE
     Dosage: 40 MG, DAILY
     Dates: start: 200203, end: 200804
  12. ESOMEPRAZOLE. [Suspect]
     Active Substance: ESOMEPRAZOLE MAGNESIUM
     Dosage: UNK
  13. PROTONIX [Suspect]
     Active Substance: PANTOPRAZOLE SODIUM
     Dosage: UNK
     Route: 042
  14. PANTOPRAZOLE [Suspect]
     Active Substance: PANTOPRAZOLE
     Dosage: UNK
  15. PRILOSEC [Suspect]
     Active Substance: OMEPRAZOLE MAGNESIUM
     Indication: GASTROOESOPHAGEAL REFLUX DISEASE
     Dosage: 40 MG, DAILY

REACTIONS (2)
  - Chronic kidney disease [Unknown]
  - Acute kidney injury [Not Recovered/Not Resolved]
